FAERS Safety Report 5050979-2 (Version None)
Quarter: 2006Q3

REPORT INFORMATION
  Report Type: 
  Country: None (occurrence: None)
  Receive Date: 20060714
  Receipt Date: 20060629
  Transmission Date: 20061208
  Serious: Yes (Hospitalization)
  Sender: FDA-Public Use
  Company Number: PHBS2006TR09674

PATIENT
  Sex: Female

DRUGS (1)
  1. TEGASEROD [Suspect]
     Indication: IRRITABLE BOWEL SYNDROME
     Dosage: 24 MG/DAY
     Route: 048
     Dates: start: 20060627

REACTIONS (1)
  - POISONING [None]
